FAERS Safety Report 25952149 (Version 1)
Quarter: 2025Q4

REPORT INFORMATION
  Report Type: Other
  Country: CA (occurrence: CA)
  Receive Date: 20251023
  Receipt Date: 20251023
  Transmission Date: 20260117
  Serious: Yes (Other)
  Sender: APOTEX
  Company Number: CA-PGRTD-E2B_08146437

PATIENT
  Age: 35 Year
  Sex: Female

DRUGS (1)
  1. TAMOXIFEN [Suspect]
     Active Substance: TAMOXIFEN
     Indication: Hormone level abnormal
     Dosage: 20 MILLIGRAM
     Route: 048

REACTIONS (6)
  - Bone disorder [Not Recovered/Not Resolved]
  - Off label use [Not Recovered/Not Resolved]
  - Joint instability [Not Recovered/Not Resolved]
  - Product availability issue [Not Recovered/Not Resolved]
  - Gait inability [Not Recovered/Not Resolved]
  - Premature ageing [Not Recovered/Not Resolved]
